FAERS Safety Report 4337343-6 (Version None)
Quarter: 2004Q2

REPORT INFORMATION
  Report Type: 
  Country: None (occurrence: None)
  Receive Date: 20040407
  Receipt Date: 20040324
  Transmission Date: 20050107
  Serious: Yes (Other)
  Sender: FDA-Public Use
  Company Number: JP_040302867

PATIENT
  Age: 74 Year
  Sex: Male
  Weight: 52 kg

DRUGS (4)
  1. VINCRISTINE SULFATE [Suspect]
     Indication: LYMPHOMA
     Dates: start: 20011201
  2. CYCLOPHOSPHAMIDE [Concomitant]
  3. DOXORUBICIN HCL [Concomitant]
  4. PREDNISOLONE [Concomitant]

REACTIONS (3)
  - JEJUNAL STENOSIS [None]
  - MARKEDLY REDUCED DIETARY INTAKE [None]
  - TUMOUR NECROSIS [None]
